FAERS Safety Report 25738869 (Version 3)
Quarter: 2025Q3

REPORT INFORMATION
  Report Type: Report from Study
  Country: US (occurrence: US)
  Receive Date: 20250829
  Receipt Date: 20250924
  Transmission Date: 20251020
  Serious: No
  Sender: Unknown Manufacturer
  Company Number: US-MIRUM PHARMACEUTICALS, INC.-US-MIR-25-00580

PATIENT

DRUGS (3)
  1. LIVMARLI [Suspect]
     Active Substance: MARALIXIBAT CHLORIDE
     Indication: Alagille syndrome
     Dosage: 380 MICROGRAM/KILOGRAM, QD
     Route: 048
     Dates: start: 20240718, end: 20250214
  2. LIVMARLI [Suspect]
     Active Substance: MARALIXIBAT CHLORIDE
     Dosage: 190 MICROGRAM/KILOGRAM, QD
     Route: 048
     Dates: start: 20231228
  3. URSODIOL [Concomitant]
     Active Substance: URSODIOL
     Indication: Pruritus
     Dosage: 60 MG/ML COMPOUNDED ORAL SUSPENSION, 50 MG, ORAL, EVERY 12 HR,
     Route: 048
     Dates: start: 20230702

REACTIONS (1)
  - Hepatic enzyme increased [Recovered/Resolved]

NARRATIVE: CASE EVENT DATE: 20250124
